FAERS Safety Report 4695438-1 (Version None)
Quarter: 2005Q2

REPORT INFORMATION
  Report Type: 
  Country: None (occurrence: None)
  Receive Date: 20050617
  Receipt Date: 20050617
  Transmission Date: 20051028
  Serious: Yes (Other)
  Sender: FDA-Public Use
  Company Number: None

PATIENT
  Age: 55 Year
  Sex: Male
  Weight: 65 kg

DRUGS (15)
  1. GABAPENTIN [Suspect]
  2. FOSINOPRIL SODIUM [Concomitant]
  3. FUROSEMIDE [Concomitant]
  4. HUMULIN N [Concomitant]
  5. MORPHINE [Concomitant]
  6. PAROXETINE HCL [Concomitant]
  7. PAROXETINE HCL [Concomitant]
  8. INSULIN REG HUMAN INJ NOVOLIN R [Concomitant]
  9. FENTANYL [Concomitant]
  10. DOCUSATE/SENNOSIDES [Concomitant]
  11. OMEPRAZOLE [Concomitant]
  12. EPOETIN ALPHA [Concomitant]
  13. ASPIRIN [Concomitant]
  14. LORAZEPAM [Concomitant]
  15. FELODIPINE [Concomitant]

REACTIONS (1)
  - COORDINATION ABNORMAL [None]
